FAERS Safety Report 10177420 (Version 3)
Quarter: 2014Q3

REPORT INFORMATION
  Report Type: Spontaneous
  Country: BR (occurrence: BR)
  Receive Date: 20140516
  Receipt Date: 20140822
  Transmission Date: 20150326
  Serious: Yes (Other)
  Sender: FDA-Public Use
  Company Number: BR-ASTRAZENECA-2014SE32660

PATIENT
  Age: 2 Month
  Sex: Female
  Weight: 16 kg

DRUGS (6)
  1. LOSEC [Suspect]
     Active Substance: OMEPRAZOLE
     Indication: GASTRITIS
     Route: 048
     Dates: start: 200711, end: 20140506
  2. NEXIUM [Suspect]
     Active Substance: ESOMEPRAZOLE MAGNESIUM
     Indication: GASTRITIS
     Dosage: SPLITS ITS TABLET BEFORE DISSOLVING IN WATER IN ORDER TO FACILITATE DISSOLUTION
     Route: 048
  3. UNSPECIFIED ANTISEIZURE DRUGS [Concomitant]
     Route: 048
  4. UNSPECIFIED MUSCLE RELAXANT DRUGS [Concomitant]
     Route: 048
  5. LOSEC [Suspect]
     Active Substance: OMEPRAZOLE
     Indication: GASTRITIS
     Route: 048
     Dates: start: 2014
  6. NEXIUM [Suspect]
     Active Substance: ESOMEPRAZOLE MAGNESIUM
     Indication: GASTRITIS
     Route: 048
     Dates: start: 20140507, end: 2014

REACTIONS (6)
  - Constipation [Not Recovered/Not Resolved]
  - Weight decreased [Recovering/Resolving]
  - Drug hypersensitivity [Not Recovered/Not Resolved]
  - Off label use [Not Recovered/Not Resolved]
  - Documented hypersensitivity to administered drug [Recovered/Resolved]
  - Food allergy [Recovered/Resolved]

NARRATIVE: CASE EVENT DATE: 200711
